FAERS Safety Report 23690571 (Version 1)
Quarter: 2024Q2

REPORT INFORMATION
  Report Type: Spontaneous
  Country: US (occurrence: US)
  Receive Date: 20240401
  Receipt Date: 20240401
  Transmission Date: 20240716
  Serious: Yes (Other)
  Sender: FDA-Public Use
  Company Number: US-ABBVIE-5642600

PATIENT
  Sex: Female
  Weight: 98.4 kg

DRUGS (4)
  1. RINVOQ [Suspect]
     Active Substance: UPADACITINIB
     Indication: Colitis microscopic
     Route: 048
     Dates: start: 20240202, end: 20240206
  2. ATIVAN [Concomitant]
     Active Substance: LORAZEPAM
     Indication: Sleep disorder
     Dosage: FREQUENCY TEXT: EVERY HOUR
     Route: 048
     Dates: start: 20170822
  3. WELLBUTRIN [Concomitant]
     Active Substance: BUPROPION HYDROCHLORIDE
     Indication: Anxiety
     Dosage: FREQUENCY TEXT: EVERY 24 HOURS
     Route: 048
     Dates: start: 20170614
  4. ATORVASTATIN [Concomitant]
     Active Substance: ATORVASTATIN
     Indication: Blood cholesterol
     Dosage: FREQUENCY TEXT: ONCE A DAY
     Route: 048
     Dates: start: 20230605

REACTIONS (7)
  - Headache [Recovered/Resolved]
  - Palpitations [Recovered/Resolved]
  - Off label use [Unknown]
  - Treatment noncompliance [Unknown]
  - Pruritus [Recovered/Resolved]
  - Chest pain [Recovered/Resolved]
  - Dermatitis [Recovered/Resolved]

NARRATIVE: CASE EVENT DATE: 20240101
